FAERS Safety Report 10590090 (Version 1)
Quarter: 2014Q4

REPORT INFORMATION
  Report Type: Spontaneous
  Country: US (occurrence: None)
  Receive Date: 20141117
  Receipt Date: 20141117
  Transmission Date: 20150529
  Serious: No
  Sender: FDA-Public Use
  Company Number: None

PATIENT
  Age: 71 Year
  Sex: Female
  Weight: 72.58 kg

DRUGS (3)
  1. BACITRACIN ZINC AND POLYMYXIN B SULFATE [Suspect]
     Active Substance: BACITRACIN ZINC\POLYMYXIN B SULFATE
     Indication: EYELID CYST
     Dosage: OINTMENT, TWICE DAILY, APPLY TO WOUND ON EYELIDS.
     Dates: start: 20141108, end: 20141112
  2. BACITRACIN ZINC AND POLYMYXIN B SULFATE [Suspect]
     Active Substance: BACITRACIN ZINC\POLYMYXIN B SULFATE
     Indication: INFECTION PROPHYLAXIS
     Dosage: OINTMENT, TWICE DAILY, APPLY TO WOUND ON EYELIDS.
     Dates: start: 20141108, end: 20141112
  3. BACITRACIN ZINC AND POLYMYXIN B SULFATE [Suspect]
     Active Substance: BACITRACIN ZINC\POLYMYXIN B SULFATE
     Indication: POSTOPERATIVE CARE
     Dosage: OINTMENT, TWICE DAILY, APPLY TO WOUND ON EYELIDS.
     Dates: start: 20141108, end: 20141112

REACTIONS (4)
  - Eyelid oedema [None]
  - Rash erythematous [None]
  - Pruritus [None]
  - Swelling face [None]

NARRATIVE: CASE EVENT DATE: 20141111
